FAERS Safety Report 6167070-4 (Version None)
Quarter: 2009Q2

REPORT INFORMATION
  Report Type: 
  Country: None (occurrence: None)
  Receive Date: 20090424
  Receipt Date: 20090422
  Transmission Date: 20091009
  Serious: Yes (Hospitalization, Other)
  Sender: FDA-Public Use
  Company Number: FR-BRISTOL-MYERS SQUIBB COMPANY-14591242

PATIENT
  Age: 48 Year
  Sex: Female

DRUGS (8)
  1. REYATAZ [Suspect]
     Indication: HIV INFECTION
     Route: 048
     Dates: start: 20090216, end: 20090303
  2. CYCLOPHOSPHAMIDE [Suspect]
     Indication: BREAST CANCER
     Dates: start: 20090223
  3. TRUVADA [Suspect]
     Indication: HIV INFECTION
     Route: 048
     Dates: start: 20090216, end: 20090309
  4. NORVIR [Suspect]
     Indication: HIV INFECTION
     Dates: start: 20090216
  5. VALACYCLOVIR HCL [Suspect]
     Indication: HERPES ZOSTER
     Route: 048
     Dates: start: 20090305, end: 20090309
  6. FLUOROURACIL [Suspect]
     Indication: BREAST CANCER
     Dates: start: 20090223
  7. EPIRUBICIN [Suspect]
     Indication: BREAST CANCER
     Dates: start: 20090223
  8. PRETERAX [Concomitant]
     Indication: HYPERTENSION

REACTIONS (3)
  - RENAL FAILURE ACUTE [None]
  - RENAL TUBULAR NECROSIS [None]
  - STAPHYLOCOCCAL BACTERAEMIA [None]
